FAERS Safety Report 7410243-0 (Version None)
Quarter: 2011Q2

REPORT INFORMATION
  Report Type: 
  Country: None (occurrence: None)
  Receive Date: 20110412
  Receipt Date: 20110407
  Transmission Date: 20111010
  Serious: Yes (Other)
  Sender: FDA-Public Use
  Company Number: IE-AMGEN-IRLSP2011018616

PATIENT
  Sex: Female

DRUGS (7)
  1. PONSTAN FORTE [Concomitant]
     Dosage: 500 MG, UNK
  2. NEULASTA [Suspect]
     Indication: CHEMOTHERAPY
     Dosage: 6 MG, AFTER CHEMO
     Route: 058
  3. ATIVAN [Concomitant]
     Dosage: 1 MG, UNK
  4. ANTINEOPLASTIC AGENTS [Concomitant]
  5. DOMERID [Concomitant]
     Dosage: 10 MG, UNK
  6. PANTOPRAZOL                        /01263202/ [Concomitant]
     Dosage: 20 MG, UNK
  7. ONDASETRON                         /00955301/ [Concomitant]
     Dosage: 8 MG, UNK

REACTIONS (2)
  - CYSTITIS [None]
  - GAIT DISTURBANCE [None]
